FAERS Safety Report 25413200 (Version 2)
Quarter: 2025Q2

REPORT INFORMATION
  Report Type: Spontaneous
  Country: JP (occurrence: JP)
  Receive Date: 20250609
  Receipt Date: 20250616
  Transmission Date: 20250716
  Serious: Yes (Other)
  Sender: PFIZER
  Company Number: JP-PFIZER INC-202500106206

PATIENT
  Age: 6 Decade
  Sex: Female

DRUGS (1)
  1. LITFULO [Suspect]
     Active Substance: RITLECITINIB TOSYLATE
     Indication: Alopecia areata
     Route: 048
     Dates: start: 20250202

REACTIONS (3)
  - Urinary bladder haemorrhage [Unknown]
  - Epistaxis [Unknown]
  - Haematuria [Unknown]

NARRATIVE: CASE EVENT DATE: 20250501
